FAERS Safety Report 5743423-0 (Version None)
Quarter: 2008Q2

REPORT INFORMATION
  Report Type: 
  Country: None (occurrence: None)
  Receive Date: 20080520
  Receipt Date: 20080508
  Transmission Date: 20081010
  Serious: Yes (Other)
  Sender: FDA-Public Use
  Company Number: US-ROCHE-527503

PATIENT
  Sex: Male
  Weight: 106.6 kg

DRUGS (2)
  1. ACCUTANE [Suspect]
     Indication: ACNE
     Dosage: HE WAS ON ACCUTANE 40 MG AND 20 MG.
     Route: 065
     Dates: start: 19941010, end: 19941010
  2. ACCUTANE [Suspect]
     Dosage: HIS DOSE FOR ACCUTANE CHANGED ON 31 OCTOBER 1994 TO 40-40-10.
     Route: 065
     Dates: start: 19941031, end: 19950320

REACTIONS (15)
  - ANAL FISSURE [None]
  - ANXIETY [None]
  - BLOOD TRIGLYCERIDES INCREASED [None]
  - CHEST PAIN [None]
  - COLITIS [None]
  - COLITIS ULCERATIVE [None]
  - DEPRESSION [None]
  - EPISTAXIS [None]
  - HEADACHE [None]
  - HEPATIC ENZYME INCREASED [None]
  - INFLAMMATORY BOWEL DISEASE [None]
  - INTESTINAL MASS [None]
  - LIP DRY [None]
  - MUSCULOSKELETAL PAIN [None]
  - MYALGIA [None]
